FAERS Safety Report 4619752-0 (Version None)
Quarter: 2005Q1

REPORT INFORMATION
  Report Type: 
  Country: None (occurrence: None)
  Receive Date: 20050325
  Receipt Date: 20050218
  Transmission Date: 20050727
  Serious: Yes (Hospitalization)
  Sender: FDA-Public Use
  Company Number: JP-MERCK-0502USA02754

PATIENT
  Age: 77 Year
  Sex: Female
  Weight: 41 kg

DRUGS (9)
  1. SINGULAIR [Suspect]
     Indication: ASTHMA
     Route: 048
     Dates: start: 20030908
  2. SINGULAIR [Suspect]
     Route: 048
     Dates: start: 20050111, end: 20050131
  3. DOMPERIDONE [Concomitant]
     Indication: NAUSEA
     Route: 048
     Dates: end: 20050207
  4. SUCRALFATE [Concomitant]
     Route: 048
     Dates: end: 20050207
  5. ACINON [Concomitant]
     Route: 048
     Dates: end: 20050207
  6. ASTHMOLYSIN [Concomitant]
     Route: 048
     Dates: end: 20050207
  7. TIARAMIDE HYDROCHLORIDE [Concomitant]
     Route: 048
     Dates: end: 20050207
  8. MUCOSTA [Concomitant]
     Route: 048
     Dates: end: 20050207
  9. TRIAMCINOLONE ACETONIDE [Concomitant]
     Route: 051
     Dates: end: 20030908

REACTIONS (7)
  - ALLERGIC GRANULOMATOUS ANGIITIS [None]
  - BACK PAIN [None]
  - DIFFICULTY IN WALKING [None]
  - FACE OEDEMA [None]
  - HAEMATURIA [None]
  - PAIN [None]
  - PERONEAL NERVE PALSY [None]
